FAERS Safety Report 6196401-4 (Version None)
Quarter: 2009Q2

REPORT INFORMATION
  Report Type: 
  Country: None (occurrence: None)
  Receive Date: 20090518
  Receipt Date: 20090518
  Transmission Date: 20091009
  Serious: Yes (Hospitalization)
  Sender: FDA-Public Use
  Company Number: None

PATIENT
  Sex: Male
  Weight: 91.8 kg

DRUGS (1)
  1. TAXOTERE [Suspect]
     Dosage: 157 MG

REACTIONS (5)
  - ABDOMINAL PAIN [None]
  - FEBRILE NEUTROPENIA [None]
  - MUCOSAL INFLAMMATION [None]
  - ORAL DISORDER [None]
  - ORAL PAIN [None]
